FAERS Safety Report 7094052-0 (Version None)
Quarter: 2010Q4

REPORT INFORMATION
  Report Type: 
  Country: None (occurrence: None)
  Receive Date: 20101110
  Receipt Date: 20101028
  Transmission Date: 20110411
  Serious: Yes (Hospitalization)
  Sender: FDA-Public Use
  Company Number: US-ELI_LILLY_AND_COMPANY-US201011000687

PATIENT
  Age: 57 Year
  Sex: Female

DRUGS (1)
  1. ZYPREXA [Suspect]
     Dosage: 10 MG, UNKNOWN
     Route: 065

REACTIONS (3)
  - CONTUSION [None]
  - HAEMORRHAGE [None]
  - THROMBOCYTOPENIA [None]
